FAERS Safety Report 8840556 (Version 1)
Quarter: 2012Q4

REPORT INFORMATION
  Report Type: 
  Country: US (occurrence: US)
  Receive Date: 20121015
  Receipt Date: 20121015
  Transmission Date: 20130627
  Serious: Yes (Other)
  Sender: FDA-Public Use
  Company Number: US-ROCHE-1073952

PATIENT
  Age: 18 Year
  Sex: Male
  Weight: 83.99 kg

DRUGS (2)
  1. ACCUTANE [Suspect]
     Indication: ACNE
     Route: 048
     Dates: start: 200009
  2. ACCUTANE [Suspect]
     Route: 048
     Dates: start: 20001018, end: 20010411

REACTIONS (10)
  - Inflammatory bowel disease [Unknown]
  - Crohn^s disease [Unknown]
  - Large intestine polyp [Unknown]
  - Depression [Unknown]
  - Cheilitis [Unknown]
  - Dry skin [Recovered/Resolved]
  - Rash [Unknown]
  - Upper respiratory tract infection [Unknown]
  - Dry eye [Unknown]
  - Fatigue [Unknown]
